FAERS Safety Report 8616963 (Version 2)
Quarter: 2013Q2

REPORT INFORMATION
  Report Type: Spontaneous
  Country: CN (occurrence: CN)
  Receive Date: 20120615
  Receipt Date: 20130510
  Transmission Date: 20140414
  Serious: Yes (Death, Other)
  Sender: FDA-Public Use
  Company Number: CN-PFIZER INC-2012141851

PATIENT
  Age: 26 Year
  Sex: Female

DRUGS (1)
  1. SUTENT [Suspect]
     Indication: GASTROINTESTINAL STROMAL TUMOUR

REACTIONS (4)
  - Disease progression [Fatal]
  - Gastrointestinal stromal tumour [Fatal]
  - Multi-organ failure [Fatal]
  - Ascites [Unknown]
